FAERS Safety Report 6368985-4 (Version None)
Quarter: 2009Q3

REPORT INFORMATION
  Report Type: 
  Country: None (occurrence: None)
  Receive Date: 20090918
  Receipt Date: 20090918
  Transmission Date: 20100115
  Serious: Yes (Hospitalization)
  Sender: FDA-Public Use
  Company Number: None

PATIENT
  Age: 64 Year
  Sex: Female

DRUGS (2)
  1. AMIODARONE HCL [Suspect]
     Indication: ARRHYTHMIA
     Dosage: 400 MG Q8H PO
     Route: 048
     Dates: start: 20090305, end: 20090330
  2. AMIODARONE HCL [Suspect]
     Dosage: 200 MG QDAY PO
     Route: 048

REACTIONS (1)
  - ORGANISING PNEUMONIA [None]
